FAERS Safety Report 14061243 (Version 1)
Quarter: 2017Q4

REPORT INFORMATION
  Report Type: Report from Study
  Country: None (occurrence: BR)
  Receive Date: 20171009
  Receipt Date: 20171009
  Transmission Date: 20180321
  Serious: Yes (Death, Other)
  Sender: FDA-Public Use
  Company Number: BR-ABBVIE-17K-020-2124340-00

PATIENT
  Age: 60 Year
  Sex: Male
  Weight: 74 kg

DRUGS (9)
  1. PARACETAMOL [Concomitant]
     Active Substance: ACETAMINOPHEN
     Indication: SPINAL PAIN
  2. HUMIRA [Suspect]
     Active Substance: ADALIMUMAB
     Indication: ANKYLOSING SPONDYLITIS
     Route: 058
     Dates: start: 2010, end: 2015
  3. AMIODARONE [Concomitant]
     Active Substance: AMIODARONE
     Indication: CARDIOMYOPATHY
  4. FOLIC ACID. [Concomitant]
     Active Substance: FOLIC ACID
     Indication: IMMUNODEFICIENCY
  5. GABAPENTIN. [Concomitant]
     Active Substance: GABAPENTIN
     Indication: SPINAL PAIN
  6. METHOTREXATE. [Concomitant]
     Active Substance: METHOTREXATE
     Indication: SPONDYLITIS
  7. METHADONE [Concomitant]
     Active Substance: METHADONE HYDROCHLORIDE
     Indication: SPINAL PAIN
  8. OMEPRAZOLE. [Concomitant]
     Active Substance: OMEPRAZOLE
     Indication: ABDOMINAL PAIN UPPER
  9. PREDNISONE. [Concomitant]
     Active Substance: PREDNISONE
     Indication: BLOOD PRESSURE MEASUREMENT

REACTIONS (8)
  - Fluid retention [Recovered/Resolved]
  - Osteoporosis [Not Recovered/Not Resolved]
  - American trypanosomiasis [Unknown]
  - Cardiomyopathy [Unknown]
  - Spinal pain [Not Recovered/Not Resolved]
  - Arrhythmia [Unknown]
  - Myocardial infarction [Fatal]
  - Vitamin D decreased [Not Recovered/Not Resolved]

NARRATIVE: CASE EVENT DATE: 2016
